FAERS Safety Report 21153396 (Version 1)
Quarter: 2022Q3

REPORT INFORMATION
  Report Type: Spontaneous
  Country: US (occurrence: None)
  Receive Date: 20220731
  Receipt Date: 20220731
  Transmission Date: 20221027
  Serious: Yes (Other)
  Sender: FDA-Public Use
  Company Number: US-ROCHE-3148194

PATIENT
  Sex: Female

DRUGS (6)
  1. OCREVUS [Suspect]
     Active Substance: OCRELIZUMAB
     Indication: Product used for unknown indication
     Route: 065
     Dates: start: 2018
  2. VALCYTE [Suspect]
     Active Substance: VALGANCICLOVIR HYDROCHLORIDE
     Indication: Product used for unknown indication
     Route: 065
  3. GABAPENTIN [Concomitant]
     Active Substance: GABAPENTIN
  4. CALCIUM\VITAMIN D [Concomitant]
     Active Substance: CALCIUM\VITAMIN D
  5. BACLOFEN [Concomitant]
     Active Substance: BACLOFEN
  6. EFFEXOR [Concomitant]
     Active Substance: VENLAFAXINE HYDROCHLORIDE

REACTIONS (2)
  - Rash [Unknown]
  - Herpes zoster [Unknown]
